FAERS Safety Report 19455228 (Version 1)
Quarter: 2021Q2

REPORT INFORMATION
  Report Type: Other
  Country: US (occurrence: US)
  Receive Date: 20210623
  Receipt Date: 20210623
  Transmission Date: 20210717
  Serious: No
  Sender: FDA-Public Use
  Company Number: US-ROCHE-2745259

PATIENT
  Age: 63 Year
  Sex: Female

DRUGS (5)
  1. LETERMOVIR [Concomitant]
     Active Substance: LETERMOVIR
     Route: 048
  2. VALGANCICLOVIR. [Suspect]
     Active Substance: VALGANCICLOVIR
     Indication: RENAL TRANSPLANT
     Route: 065
  3. FOSCARNET [Concomitant]
     Active Substance: FOSCARNET
  4. GANCICLOVIR. [Concomitant]
     Active Substance: GANCICLOVIR
  5. CIDOFOVIR. [Concomitant]
     Active Substance: CIDOFOVIR

REACTIONS (1)
  - Drug resistance [Unknown]
